FAERS Safety Report 22323561 (Version 1)
Quarter: 2023Q2

REPORT INFORMATION
  Report Type: Report from Study
  Country: GR (occurrence: GR)
  Receive Date: 20230516
  Receipt Date: 20230516
  Transmission Date: 20230722
  Serious: Yes (Other)
  Sender: FDA-Public Use
  Company Number: GR-ACTELION-A-CH2019-192140

PATIENT
  Age: 56 Year
  Sex: Male
  Weight: 100 kg

DRUGS (17)
  1. UPTRAVI [Suspect]
     Active Substance: SELEXIPAG
     Indication: Pulmonary arterial hypertension
     Dosage: 400 MCG, QD
     Route: 048
     Dates: start: 20190323
  2. UPTRAVI [Suspect]
     Active Substance: SELEXIPAG
     Dosage: 800 MCG, QD
     Route: 048
     Dates: start: 20190328
  3. UPTRAVI [Suspect]
     Active Substance: SELEXIPAG
     Dosage: 1200 MCG, QD
     Route: 048
     Dates: start: 20190404
  4. UPTRAVI [Suspect]
     Active Substance: SELEXIPAG
     Dosage: 1600 MCG, QD
     Route: 048
     Dates: start: 20190418
  5. UPTRAVI [Suspect]
     Active Substance: SELEXIPAG
     Dosage: 1600 MCG, QD
     Route: 048
     Dates: start: 20190531
  6. UPTRAVI [Suspect]
     Active Substance: SELEXIPAG
     Dosage: 2000 MCG, QD
     Route: 048
     Dates: start: 20190517, end: 20190531
  7. REVATIO [Concomitant]
     Active Substance: SILDENAFIL CITRATE
     Indication: Pulmonary arterial hypertension
     Dosage: 60 UNK, QD
     Route: 065
     Dates: start: 20141126, end: 20190323
  8. AMBRISENTAN [Concomitant]
     Active Substance: AMBRISENTAN
     Indication: Pulmonary arterial hypertension
     Dosage: 5 UNK, QD
     Dates: start: 20140530
  9. ADCIRCA [Concomitant]
     Active Substance: TADALAFIL
     Indication: Pulmonary arterial hypertension
     Dosage: 40 UNK, QD
     Dates: start: 20190323
  10. METOPROLOL TARTRATE [Concomitant]
     Active Substance: METOPROLOL TARTRATE
     Indication: Arrhythmia
     Dosage: 50 MG, BID
     Route: 048
     Dates: start: 201804
  11. ALLOPURINOL [Concomitant]
     Active Substance: ALLOPURINOL
     Indication: Hyperuricaemia
     Dosage: 100 MG, BID
     Route: 048
     Dates: start: 201404
  12. LASIX [Concomitant]
     Active Substance: FUROSEMIDE
     Indication: Pulmonary hypertension
     Dosage: 40 MG, BID
     Route: 048
     Dates: start: 201404
  13. AZITHROMYCIN [Concomitant]
     Active Substance: AZITHROMYCIN
     Indication: Bronchitis
     Dosage: 250 MG, QD
     Route: 048
     Dates: start: 20190129, end: 20190226
  14. XANAX [Concomitant]
     Active Substance: ALPRAZOLAM
     Indication: Stress
     Dosage: UNK
     Route: 048
     Dates: start: 20180420, end: 20180625
  15. RIFAXIMIN [Concomitant]
     Active Substance: RIFAXIMIN
     Indication: Colitis ulcerative
     Dosage: UNK
     Route: 048
     Dates: start: 2011
  16. SINTROM [Concomitant]
     Active Substance: ACENOCOUMAROL
     Indication: Stent placement
     Dosage: UNK
     Route: 048
     Dates: start: 2011
  17. IMODIUM [Concomitant]
     Active Substance: LOPERAMIDE HYDROCHLORIDE
     Indication: Diarrhoea
     Dosage: 4 DF, BID
     Route: 048
     Dates: start: 20200317

REACTIONS (5)
  - Intussusception [Recovered/Resolved]
  - Diarrhoea [Recovered/Resolved]
  - Headache [Recovered/Resolved]
  - Dizziness [Recovered/Resolved]
  - Constipation [Recovered/Resolved]

NARRATIVE: CASE EVENT DATE: 20190415
